FAERS Safety Report 7917016-0 (Version None)
Quarter: 2011Q4

REPORT INFORMATION
  Report Type: 
  Country: None (occurrence: None)
  Receive Date: 20111116
  Receipt Date: 20111102
  Transmission Date: 20120403
  Serious: Yes (Hospitalization)
  Sender: FDA-Public Use
  Company Number: JP-NOVOPROD-338081

PATIENT

DRUGS (7)
  1. VICTOZA [Suspect]
     Dosage: 0.3 MG, QD
     Route: 058
     Dates: start: 20110803, end: 20110916
  2. METHYCOBAL [Concomitant]
     Dosage: /PO
     Route: 048
     Dates: start: 20110303
  3. VICTOZA [Suspect]
     Dosage: 0.6 MG, QD
     Route: 058
     Dates: start: 20110629
  4. CRESTOR [Concomitant]
     Dosage: /PO
     Route: 048
     Dates: start: 20110630
  5. KINEDAK [Concomitant]
     Dosage: /PO
     Route: 048
     Dates: start: 20110630
  6. ALLOPURINOL [Concomitant]
     Dosage: /PO
     Route: 048
     Dates: start: 20110428
  7. VICTOZA [Suspect]
     Indication: DIABETES MELLITUS
     Dosage: 0.3 MG, QD
     Route: 058
     Dates: start: 20110603

REACTIONS (2)
  - DIARRHOEA [None]
  - PANCREATITIS ACUTE [None]
